FAERS Safety Report 4449682-9 (Version None)
Quarter: 2004Q3

REPORT INFORMATION
  Report Type: 
  Country: None (occurrence: None)
  Receive Date: 20040913
  Receipt Date: 20031009
  Transmission Date: 20050211
  Serious: Yes (Other)
  Sender: FDA-Public Use
  Company Number: 2003-00596FE

PATIENT
  Age: 4 Month
  Sex: Male

DRUGS (1)
  1. MESALAZINE (MESALAZINE) [Suspect]
     Indication: CROHN'S DISEASE
     Dosage: ORALLY
     Route: 048

REACTIONS (30)
  - APNOEA [None]
  - ATTENTION DEFICIT/HYPERACTIVITY DISORDER [None]
  - BLOOD GLUCOSE INCREASED [None]
  - CEREBRAL ATROPHY [None]
  - COMPUTERISED TOMOGRAM ABNORMAL [None]
  - CRYING [None]
  - FIBRIN DEGRADATION PRODUCTS INCREASED [None]
  - GENERAL PHYSICAL HEALTH DETERIORATION [None]
  - HAEMATOCRIT DECREASED [None]
  - HAEMOGLOBIN DECREASED [None]
  - HAEMORRHAGE [None]
  - HYPERCOAGULATION [None]
  - HYPERKINESIA [None]
  - HYPERTONIA [None]
  - HYPOTONIA [None]
  - INFLAMMATION [None]
  - IRRITABILITY [None]
  - LUMBAR PUNCTURE ABNORMAL [None]
  - MYDRIASIS [None]
  - PAIN [None]
  - PROTEIN TOTAL DECREASED [None]
  - PROTHROMBIN TIME PROLONGED [None]
  - PUPILLARY REFLEX IMPAIRED [None]
  - PYREXIA [None]
  - RETINAL HAEMORRHAGE [None]
  - SOCIAL AVOIDANT BEHAVIOUR [None]
  - SUPERIOR SAGITTAL SINUS THROMBOSIS [None]
  - THROMBOCYTHAEMIA [None]
  - VOMITING [None]
  - WHITE BLOOD CELL COUNT INCREASED [None]
